FAERS Safety Report 21715050 (Version 1)
Quarter: 2022Q4

REPORT INFORMATION
  Report Type: Spontaneous
  Country: US (occurrence: None)
  Receive Date: 20221211
  Receipt Date: 20221211
  Transmission Date: 20230112
  Serious: Yes (Disabling)
  Sender: FDA-Public Use
  Company Number: None

PATIENT
  Age: 10 Year
  Sex: Female
  Weight: 22.5 kg

DRUGS (1)
  1. MIRALAX [Suspect]
     Active Substance: POLYETHYLENE GLYCOL 3350
     Indication: Constipation

REACTIONS (5)
  - Behaviour disorder [None]
  - Neuropsychological test abnormal [None]
  - Anxiety [None]
  - Mood swings [None]
  - Anger [None]

NARRATIVE: CASE EVENT DATE: 20141005
